FAERS Safety Report 9174698 (Version 1)
Quarter: 2013Q1

REPORT INFORMATION
  Report Type: Spontaneous
  Country: FR (occurrence: None)
  Receive Date: 20130318
  Receipt Date: 20130318
  Transmission Date: 20140127
  Serious: Yes (Hospitalization)
  Sender: FDA-Public Use
  Company Number: SYM-2013-01653

PATIENT
  Age: 10 Year
  Sex: Male

DRUGS (5)
  1. FLAGYL [Suspect]
     Indication: PRODUCT USED FOR UNKNOWN INDICATION
     Dosage: 3 TIMES A DAY,  (NOT OTHERWISE SPECIFIED)
     Route: 042
     Dates: start: 20120817, end: 20120908
  2. KEPPRA [Suspect]
     Indication: CONVULSION
     Route: 048
     Dates: start: 20120821, end: 20120907
  3. CLAFORAN (CEFOTAXIME SODIUM)(UNKNOWN)(CEFOTAXIME SODIUM) [Concomitant]
  4. DUPHALAC (LACTULOSE) (UNKNOWN) (LACTULOSE) [Concomitant]
  5. PERFALGAN [Concomitant]

REACTIONS (12)
  - Drug reaction with eosinophilia and systemic symptoms [None]
  - Neutropenia [None]
  - Convulsion [None]
  - Vomiting [None]
  - General physical health deterioration [None]
  - Anaemia [None]
  - Platelet count decreased [None]
  - Hepatocellular injury [None]
  - Pyrexia [None]
  - Lipase increased [None]
  - Alanine aminotransferase [None]
  - Alanine aminotransferase increased [None]
